FAERS Safety Report 4622037-X (Version None)
Quarter: 2005Q2

REPORT INFORMATION
  Report Type: 
  Country: None (occurrence: None)
  Receive Date: 20050328
  Receipt Date: 20050309
  Transmission Date: 20051028
  Serious: Yes (Hospitalization)
  Sender: FDA-Public Use
  Company Number: 1761

PATIENT
  Age: 55 Year
  Sex: Female

DRUGS (8)
  1. AVINZA [Suspect]
     Indication: PAIN
     Dosage: 30 MG QD PO
     Route: 048
     Dates: start: 20041022, end: 20050201
  2. AVINZA [Suspect]
     Indication: PAIN
     Dosage: 60 MG QD PO
     Route: 048
     Dates: start: 20050201, end: 20050308
  3. ESOMEPRAZOLE [Concomitant]
  4. ESTERIFIED ESTROGENS TABLETS [Concomitant]
  5. FLUOXETINE HCL [Concomitant]
  6. LORAZEPAM [Concomitant]
  7. QUETIAPINE [Concomitant]
  8. SALMETEROL [Concomitant]

REACTIONS (1)
  - OVERDOSE [None]
